FAERS Safety Report 6219369-0 (Version None)
Quarter: 2009Q2

REPORT INFORMATION
  Report Type: 
  Country: None (occurrence: None)
  Receive Date: 20090605
  Receipt Date: 20090605
  Transmission Date: 20091009
  Serious: Yes (Other)
  Sender: FDA-Public Use
  Company Number: None

PATIENT
  Age: 42 Year
  Sex: Male
  Weight: 72.5755 kg

DRUGS (1)
  1. GABAPENTIN [Suspect]
     Indication: INTERVERTEBRAL DISC OPERATION
     Dosage: 1 TAD 3XDAY AS TOLERATED
     Dates: start: 20090527, end: 20090605

REACTIONS (8)
  - AMNESIA [None]
  - BALANCE DISORDER [None]
  - CONDITION AGGRAVATED [None]
  - FALL [None]
  - FATIGUE [None]
  - FEELING ABNORMAL [None]
  - NECK PAIN [None]
  - SOMNOLENCE [None]
